FAERS Safety Report 7430938-2 (Version None)
Quarter: 2011Q2

REPORT INFORMATION
  Report Type: 
  Country: None (occurrence: None)
  Receive Date: 20110421
  Receipt Date: 20110418
  Transmission Date: 20111010
  Serious: Yes (Death)
  Sender: FDA-Public Use
  Company Number: PHHY2011NL32978

PATIENT
  Sex: Male

DRUGS (1)
  1. ZOMETA [Suspect]
     Indication: LARYNGEAL CANCER
     Dosage: 4 MG/5 ML,
     Dates: start: 20110324

REACTIONS (2)
  - HAEMOGLOBIN DECREASED [None]
  - INTESTINAL HAEMORRHAGE [None]
